FAERS Safety Report 11458048 (Version 3)
Quarter: 2015Q4

REPORT INFORMATION
  Report Type: Spontaneous
  Country: US (occurrence: US)
  Receive Date: 20150904
  Receipt Date: 20151124
  Transmission Date: 20160304
  Serious: Yes (Other)
  Sender: FDA-Public Use
  Company Number: US-009507513-1509USA001975

PATIENT
  Age: 72 Year
  Sex: Male

DRUGS (1)
  1. BELSOMRA [Suspect]
     Active Substance: SUVOREXANT
     Indication: INSOMNIA
     Dosage: 10 MG / ONE PER DAY, EVERY NIGHT AT BEDTIME
     Route: 048
     Dates: start: 20150828, end: 20150901

REACTIONS (5)
  - Somnambulism [Unknown]
  - Myocardial infarction [Recovering/Resolving]
  - Blood pressure increased [Unknown]
  - Abdominal pain [Unknown]
  - Drug ineffective [Unknown]

NARRATIVE: CASE EVENT DATE: 2015
